FAERS Safety Report 5929336-X (Version None)
Quarter: 2008Q4

REPORT INFORMATION
  Report Type: 
  Country: None (occurrence: None)
  Receive Date: 20081023
  Receipt Date: 20081023
  Transmission Date: 20090506
  Serious: Yes (Hospitalization)
  Sender: FDA-Public Use
  Company Number: None

PATIENT
  Age: 45 Year
  Sex: Male
  Weight: 78.93 kg

DRUGS (1)
  1. KETOROLAC TROMETHAMINE [Suspect]
     Indication: PAIN
     Dosage: 60 MG ONCE IM
     Route: 030
     Dates: start: 20081014, end: 20081014

REACTIONS (3)
  - DIARRHOEA [None]
  - ERYTHEMA MULTIFORME [None]
  - HYPERSENSITIVITY [None]
